FAERS Safety Report 11872526 (Version 1)
Quarter: 2015Q4

REPORT INFORMATION
  Report Type: Spontaneous
  Country: US (occurrence: US)
  Receive Date: 20151228
  Receipt Date: 20151228
  Transmission Date: 20160305
  Serious: Yes (Hospitalization)
  Sender: FDA-Public Use
  Company Number: US-TEVA-620893USA

PATIENT

DRUGS (3)
  1. NOVOSEVEN RT [Suspect]
     Active Substance: COAGULATION FACTOR VIIA RECOMBINANT HUMAN
     Route: 065
  2. WARFARIN [Suspect]
     Active Substance: WARFARIN
     Indication: ANTICOAGULANT THERAPY
     Route: 048
  3. PHYTOMENADIONE [Suspect]
     Active Substance: PHYTONADIONE
     Indication: HAEMORRHAGE INTRACRANIAL
     Route: 065

REACTIONS (2)
  - Haemorrhage intracranial [Unknown]
  - Disseminated intravascular coagulation [Unknown]
